FAERS Safety Report 5505874-9 (Version None)
Quarter: 2007Q4

REPORT INFORMATION
  Report Type: 
  Country: None (occurrence: None)
  Receive Date: 20071102
  Receipt Date: 20071022
  Transmission Date: 20080405
  Serious: Yes (Life-Threatening, Hospitalization)
  Sender: FDA-Public Use
  Company Number: US-MERCK-0708USA04732

PATIENT
  Age: 57 Year
  Sex: Male
  Weight: 143 kg

DRUGS (13)
  1. JANUMET [Suspect]
     Route: 048
     Dates: start: 20070813, end: 20070823
  2. SPIRONOLACTONE [Concomitant]
     Route: 065
  3. VYTORIN [Concomitant]
     Route: 048
  4. DEMADEX [Concomitant]
     Route: 065
  5. NEXIUM [Concomitant]
     Indication: GASTROOESOPHAGEAL REFLUX DISEASE
     Route: 065
  6. WELLBUTRIN XL [Concomitant]
     Route: 065
  7. CARDIZEM CD [Concomitant]
     Route: 065
  8. ULTRAM [Concomitant]
     Indication: NEURALGIA
     Route: 065
  9. NORCO [Concomitant]
     Indication: NEUROPATHY
     Route: 065
  10. LYRICA [Concomitant]
     Route: 065
  11. LEXAPRO [Concomitant]
     Route: 065
  12. CATAPRES [Concomitant]
     Route: 065
  13. GLIPIZIDE [Concomitant]
     Route: 048
     Dates: start: 20070813

REACTIONS (2)
  - HYPERKALAEMIA [None]
  - HYPONATRAEMIA [None]
